FAERS Safety Report 13266178 (Version 3)
Quarter: 2017Q1

REPORT INFORMATION
  Report Type: Report from Study
  Country: US (occurrence: US)
  Receive Date: 20170223
  Receipt Date: 20170317
  Transmission Date: 20170428
  Serious: Yes (Death, Hospitalization)
  Sender: FDA-Public Use
  Company Number: US-ACTELION-A-US2015-121445

PATIENT
  Age: 74 Year
  Sex: Male
  Weight: 112.93 kg

DRUGS (6)
  1. TYVASO [Suspect]
     Active Substance: TREPROSTINIL
     Indication: PRODUCT USED FOR UNKNOWN INDICATION
     Route: 065
  2. TREPROSTINIL DIOLAMIN [Suspect]
     Active Substance: TREPROSTINIL DIOLAMINE
     Indication: PRODUCT USED FOR UNKNOWN INDICATION
     Dosage: 2.375 MG, UNK
     Route: 065
  3. TRACLEER [Suspect]
     Active Substance: BOSENTAN
     Indication: PULMONARY ARTERIAL HYPERTENSION
     Dosage: 125 MG, BID
     Route: 048
     Dates: start: 20121105
  4. ADCIRCA [Concomitant]
     Active Substance: TADALAFIL
  5. TRACLEER [Suspect]
     Active Substance: BOSENTAN
     Dosage: UNK
     Route: 048
  6. ELIQUIS [Concomitant]
     Active Substance: APIXABAN

REACTIONS (9)
  - Dyspnoea [Unknown]
  - Pollakiuria [Unknown]
  - Unevaluable event [Unknown]
  - Diarrhoea [Recovering/Resolving]
  - Oedema peripheral [Unknown]
  - Death [Fatal]
  - Coma [Recovered/Resolved]
  - Pulmonary arterial hypertension [Unknown]
  - Immobile [Unknown]

NARRATIVE: CASE EVENT DATE: 201702
